FAERS Safety Report 13565544 (Version 3)
Quarter: 2018Q2

REPORT INFORMATION
  Report Type: Spontaneous
  Country: US (occurrence: US)
  Receive Date: 20170519
  Receipt Date: 20180504
  Transmission Date: 20180711
  Serious: Yes (Hospitalization, Disabling, Other)
  Sender: FDA-Public Use
  Company Number: US-ELI_LILLY_AND_COMPANY-US201705004101

PATIENT
  Age: 84 Year
  Sex: Female

DRUGS (13)
  1. HUMALOG [Suspect]
     Active Substance: INSULIN LISPRO
     Indication: TYPE 2 DIABETES MELLITUS
     Dosage: SLIDING SCALE
     Route: 058
     Dates: start: 1982
  2. TIMOLOL. [Concomitant]
     Active Substance: TIMOLOL
     Indication: EYE DISORDER
     Dosage: UNK, DAILY
  3. CALCIUM [Concomitant]
     Active Substance: CALCIUM
     Indication: PRODUCT USED FOR UNKNOWN INDICATION
  4. HUMALOG [Suspect]
     Active Substance: INSULIN LISPRO
     Dosage: SLIDING SCALE
     Route: 058
     Dates: end: 20180424
  5. ATORVASTATIN [Concomitant]
     Active Substance: ATORVASTATIN
     Indication: PRODUCT USED FOR UNKNOWN INDICATION
     Dosage: 20 MG, UNK
  6. VITAMIN D [Concomitant]
     Active Substance: CHOLECALCIFEROL
     Indication: PRODUCT USED FOR UNKNOWN INDICATION
  7. TRULICITY [Suspect]
     Active Substance: DULAGLUTIDE
     Indication: PRODUCT USED FOR UNKNOWN INDICATION
     Dosage: 0.75 MG, UNKNOWN
     Route: 065
  8. METFORMIN [Concomitant]
     Active Substance: METFORMIN HYDROCHLORIDE
     Indication: DIABETES MELLITUS
     Dosage: 500 MG, DAILY
  9. LANTUS [Concomitant]
     Active Substance: INSULIN GLARGINE
     Indication: DIABETES MELLITUS
     Dosage: 10 U, BID
  10. DENOSUMAB [Concomitant]
     Active Substance: DENOSUMAB
     Indication: OSTEOPOROSIS
     Dosage: 60 MG, EVERY SIX MONTHS
  11. RANITIDINE. [Concomitant]
     Active Substance: RANITIDINE
     Indication: PRODUCT USED FOR UNKNOWN INDICATION
     Dosage: 300 MG, UNK
  12. ANASTROZOLE. [Suspect]
     Active Substance: ANASTROZOLE
     Indication: BREAST CANCER
     Dosage: 1 MG, DAILY
     Route: 065
  13. ESOMEPRAZOL                        /01479301/ [Concomitant]
     Active Substance: ESOMEPRAZOLE
     Indication: PRODUCT USED FOR UNKNOWN INDICATION
     Dosage: 40 MG, DAILY

REACTIONS (25)
  - Bone disorder [Unknown]
  - Hypoaesthesia [Not Recovered/Not Resolved]
  - Blood glucose abnormal [Unknown]
  - Glycosylated haemoglobin increased [Unknown]
  - Dry mouth [Unknown]
  - Tremor [Unknown]
  - Hyperhidrosis [Unknown]
  - Nausea [Unknown]
  - Breast cancer [Not Recovered/Not Resolved]
  - Heart rate decreased [Unknown]
  - Balance disorder [Unknown]
  - Paraesthesia [Unknown]
  - Blood glucose decreased [Unknown]
  - Blood pressure increased [Unknown]
  - Nerve injury [Unknown]
  - Blood glucose increased [Unknown]
  - Blood albumin increased [Not Recovered/Not Resolved]
  - Pollakiuria [Unknown]
  - Blood pressure decreased [Not Recovered/Not Resolved]
  - Macular degeneration [Not Recovered/Not Resolved]
  - Eating disorder [Not Recovered/Not Resolved]
  - Visual impairment [Not Recovered/Not Resolved]
  - Chronic kidney disease [Unknown]
  - Sleep disorder due to a general medical condition [Unknown]
  - Blood creatinine increased [Not Recovered/Not Resolved]

NARRATIVE: CASE EVENT DATE: 20170509
